FAERS Safety Report 5478552-2 (Version None)
Quarter: 2007Q4

REPORT INFORMATION
  Report Type: 
  Country: None (occurrence: None)
  Receive Date: 20071005
  Receipt Date: 20071005
  Transmission Date: 20080405
  Serious: Yes (Other)
  Sender: FDA-Public Use
  Company Number: US-GENENTECH-246924

PATIENT
  Age: 78 Year
  Sex: Female

DRUGS (1)
  1. ACTIVASE [Suspect]
     Indication: RETINAL HAEMORRHAGE
     Dosage: MAXIMUM 50 MCG SUBRETINALLY

REACTIONS (1)
  - MACULAR HOLE [None]
